FAERS Safety Report 9628326 (Version 2)
Quarter: 2013Q4

REPORT INFORMATION
  Report Type: Spontaneous
  Country: GB (occurrence: GB)
  Receive Date: 20131017
  Receipt Date: 20131017
  Transmission Date: 20140711
  Serious: Yes (Other)
  Sender: FDA-Public Use
  Company Number: PHFR2013GB004242

PATIENT
  Age: 45 Year
  Sex: Female

DRUGS (3)
  1. CLOZARIL [Suspect]
     Dosage: UNK
     Route: 048
     Dates: start: 20010701
  2. CLOZARIL [Suspect]
     Dosage: 125 MG, UNK
     Route: 048
  3. PROPANOLOL [Concomitant]
     Dosage: 10 MG, UNK
     Route: 048

REACTIONS (1)
  - Anaemia [Unknown]
